FAERS Safety Report 8414171-3 (Version None)
Quarter: 2012Q2

REPORT INFORMATION
  Report Type: 
  Country: None (occurrence: None)
  Receive Date: 20120605
  Receipt Date: 20120524
  Transmission Date: 20120825
  Serious: No
  Sender: FDA-Public Use
  Company Number: US-ASTRAZENECA-2012SE25565

PATIENT
  Sex: Female

DRUGS (1)
  1. SYMBICORT [Suspect]
     Dosage: UNKNOWN STRENGTH, TWO TIMES A DAY
     Route: 055
     Dates: start: 20120301

REACTIONS (7)
  - MALAISE [None]
  - COUGH [None]
  - INSOMNIA [None]
  - DYSPNOEA [None]
  - DRUG INTOLERANCE [None]
  - INFECTION [None]
  - DYSPHONIA [None]
